FAERS Safety Report 4682484-7 (Version None)
Quarter: 2005Q2

REPORT INFORMATION
  Report Type: 
  Country: None (occurrence: None)
  Receive Date: 20050606
  Receipt Date: 20050526
  Transmission Date: 20051028
  Serious: Yes (Other)
  Sender: FDA-Public Use
  Company Number: NL-BRISTOL-MYERS SQUIBB COMPANY-12991279

PATIENT
  Age: 73 Year
  Sex: Female

DRUGS (9)
  1. METFORMIN HCL [Suspect]
     Indication: DIABETES MELLITUS NON-INSULIN-DEPENDENT
     Route: 048
     Dates: start: 20031128, end: 20040903
  2. CARBAMAZEPINE [Suspect]
     Route: 048
     Dates: start: 20040329
  3. DEPAKENE [Suspect]
     Route: 048
     Dates: start: 20040326
  4. LAMICTAL [Suspect]
     Route: 048
     Dates: start: 20040326
  5. ASPIRIN [Concomitant]
     Route: 048
     Dates: start: 20040825
  6. OXAZEPAM [Concomitant]
     Dosage: DOSAGE FORM = 10MG TAB
     Route: 048
  7. ORAP [Concomitant]
     Route: 048
     Dates: start: 20040326
  8. CACIT [Concomitant]
     Route: 048
     Dates: start: 20040326
  9. TEMAZEPAM [Concomitant]
     Route: 048
     Dates: start: 20040601

REACTIONS (1)
  - INAPPROPRIATE ANTIDIURETIC HORMONE SECRETION [None]
